FAERS Safety Report 7673557-5 (Version None)
Quarter: 2011Q3

REPORT INFORMATION
  Report Type: 
  Country: None (occurrence: None)
  Receive Date: 20110810
  Receipt Date: 20110727
  Transmission Date: 20111222
  Serious: Yes (Hospitalization, Other)
  Sender: FDA-Public Use
  Company Number: IT-ELI_LILLY_AND_COMPANY-IT201107007482

PATIENT
  Sex: Female

DRUGS (3)
  1. RALOXIFENE HYDROCHLORIDE [Suspect]
     Indication: OSTEOPOROSIS
     Dosage: 60 MG, QD
     Route: 048
     Dates: start: 20070801, end: 20110725
  2. MODURETIC 5-50 [Concomitant]
  3. VITAMIN D [Concomitant]

REACTIONS (5)
  - ISCHAEMIC STROKE [None]
  - AMNESIA [None]
  - HEMIPLEGIA [None]
  - NAUSEA [None]
  - VOMITING [None]
